FAERS Safety Report 23815708 (Version 2)
Quarter: 2024Q2

REPORT INFORMATION
  Report Type: Report from Study
  Country: BE (occurrence: BE)
  Receive Date: 20240503
  Receipt Date: 20240531
  Transmission Date: 20240716
  Serious: Yes (Hospitalization, Other)
  Sender: FDA-Public Use
  Company Number: BE-JNJFOC-20240482139

PATIENT
  Age: 6 Decade
  Sex: Male
  Weight: 98 kg

DRUGS (38)
  1. SELEXIPAG [Suspect]
     Active Substance: SELEXIPAG
     Indication: Pulmonary arterial hypertension
     Route: 048
     Dates: start: 20220913, end: 20220919
  2. SELEXIPAG [Suspect]
     Active Substance: SELEXIPAG
     Route: 048
     Dates: start: 20220906, end: 20220913
  3. SELEXIPAG [Suspect]
     Active Substance: SELEXIPAG
     Route: 048
     Dates: start: 20220829, end: 20220906
  4. SELEXIPAG [Suspect]
     Active Substance: SELEXIPAG
     Route: 048
     Dates: start: 20220822, end: 20220829
  5. SELEXIPAG [Suspect]
     Active Substance: SELEXIPAG
     Route: 048
     Dates: start: 20220816, end: 20220822
  6. SELEXIPAG [Suspect]
     Active Substance: SELEXIPAG
     Route: 048
     Dates: start: 20220810, end: 20220816
  7. MACITENTAN [Suspect]
     Active Substance: MACITENTAN
     Indication: Pulmonary arterial hypertension
     Route: 048
     Dates: start: 20211021
  8. EPOPROSTENOL SODIUM [Suspect]
     Active Substance: EPOPROSTENOL SODIUM
     Indication: Pulmonary arterial hypertension
     Route: 042
     Dates: start: 20211105, end: 20220927
  9. EPOPROSTENOL SODIUM [Suspect]
     Active Substance: EPOPROSTENOL SODIUM
     Route: 042
     Dates: start: 20211108, end: 20211112
  10. EPOPROSTENOL SODIUM [Suspect]
     Active Substance: EPOPROSTENOL SODIUM
     Route: 042
     Dates: start: 20211112, end: 20211115
  11. EPOPROSTENOL SODIUM [Suspect]
     Active Substance: EPOPROSTENOL SODIUM
     Route: 042
     Dates: start: 20211115, end: 20211116
  12. EPOPROSTENOL SODIUM [Suspect]
     Active Substance: EPOPROSTENOL SODIUM
     Route: 042
     Dates: start: 20211116, end: 20211123
  13. EPOPROSTENOL SODIUM [Suspect]
     Active Substance: EPOPROSTENOL SODIUM
     Route: 042
     Dates: start: 20211123, end: 20211130
  14. EPOPROSTENOL SODIUM [Suspect]
     Active Substance: EPOPROSTENOL SODIUM
     Route: 042
     Dates: start: 20211130, end: 20211228
  15. EPOPROSTENOL SODIUM [Suspect]
     Active Substance: EPOPROSTENOL SODIUM
     Route: 042
     Dates: start: 20211228, end: 20220105
  16. EPOPROSTENOL SODIUM [Suspect]
     Active Substance: EPOPROSTENOL SODIUM
     Route: 042
     Dates: start: 20220105, end: 20220117
  17. EPOPROSTENOL SODIUM [Suspect]
     Active Substance: EPOPROSTENOL SODIUM
     Route: 042
     Dates: start: 20220118, end: 20220204
  18. EPOPROSTENOL SODIUM [Suspect]
     Active Substance: EPOPROSTENOL SODIUM
     Route: 042
     Dates: start: 20220204, end: 20220810
  19. EPOPROSTENOL SODIUM [Suspect]
     Active Substance: EPOPROSTENOL SODIUM
     Route: 042
     Dates: start: 20220810, end: 20220816
  20. EPOPROSTENOL SODIUM [Suspect]
     Active Substance: EPOPROSTENOL SODIUM
     Route: 042
     Dates: start: 20220816, end: 20220823
  21. EPOPROSTENOL SODIUM [Suspect]
     Active Substance: EPOPROSTENOL SODIUM
     Route: 042
     Dates: start: 20220823, end: 20220830
  22. EPOPROSTENOL SODIUM [Suspect]
     Active Substance: EPOPROSTENOL SODIUM
     Route: 042
     Dates: start: 20220830, end: 20220906
  23. EPOPROSTENOL SODIUM [Suspect]
     Active Substance: EPOPROSTENOL SODIUM
     Route: 042
     Dates: start: 20220906, end: 20220913
  24. EPOPROSTENOL SODIUM [Suspect]
     Active Substance: EPOPROSTENOL SODIUM
     Route: 042
     Dates: start: 20220913, end: 20220919
  25. EPOPROSTENOL SODIUM [Suspect]
     Active Substance: EPOPROSTENOL SODIUM
     Route: 042
     Dates: start: 20220919, end: 20220927
  26. ADEMPAS [Concomitant]
     Active Substance: RIOCIGUAT
     Indication: Pulmonary arterial hypertension
     Dosage: TOTAL DAILY DOSE 3
     Route: 048
     Dates: start: 20221020, end: 20221102
  27. ADEMPAS [Concomitant]
     Active Substance: RIOCIGUAT
     Dosage: TOTAL DAILY DOSE 4.5
     Route: 048
     Dates: start: 20221102
  28. ADEMPAS [Concomitant]
     Active Substance: RIOCIGUAT
     Dosage: TOTAL DAILY DOSE 6
     Route: 048
     Dates: start: 20221116, end: 20221129
  29. ADEMPAS [Concomitant]
     Active Substance: RIOCIGUAT
     Dosage: TOTAL DAILY DOSE 6
     Route: 048
     Dates: start: 20221129, end: 20221209
  30. ADEMPAS [Concomitant]
     Active Substance: RIOCIGUAT
     Dosage: TOTAL DAILY DOSE 6
     Route: 048
     Dates: start: 20221209, end: 20230109
  31. ADEMPAS [Concomitant]
     Active Substance: RIOCIGUAT
     Dosage: TOTAL DAILY DOSE 7.5
     Route: 048
     Dates: start: 20230109, end: 20230113
  32. ADEMPAS [Concomitant]
     Active Substance: RIOCIGUAT
     Dosage: TOTAL DAILY DOSE 6
     Route: 048
     Dates: start: 20230113
  33. DEXPANTHENOL [Concomitant]
     Active Substance: DEXPANTHENOL
  34. ASPIRIN [Concomitant]
     Active Substance: ASPIRIN
  35. ADCIRCA [Concomitant]
     Active Substance: TADALAFIL
     Route: 048
     Dates: start: 20211026, end: 20221018
  36. BUMETANIDE [Concomitant]
     Active Substance: BUMETANIDE
  37. ALDACTONE [Concomitant]
     Active Substance: SPIRONOLACTONE
  38. CLOPIDOGREL [Concomitant]
     Active Substance: CLOPIDOGREL BISULFATE

REACTIONS (10)
  - Intestinal polyp [Not Recovered/Not Resolved]
  - Diarrhoea [Unknown]
  - Hyponatraemia [Unknown]
  - Anaemia [Not Recovered/Not Resolved]
  - Malaise [Not Recovered/Not Resolved]
  - Fall [Unknown]
  - Malaise [Unknown]
  - Hypotension [Unknown]
  - Systolic dysfunction [Unknown]
  - Malnutrition [Recovered/Resolved]

NARRATIVE: CASE EVENT DATE: 20240101
